FAERS Safety Report 9239073 (Version 1)
Quarter: 2013Q2

REPORT INFORMATION
  Report Type: Spontaneous
  Country: US (occurrence: US)
  Receive Date: 20130418
  Receipt Date: 20130418
  Transmission Date: 20140414
  Serious: Yes (Other)
  Sender: FDA-Public Use
  Company Number: US-PFIZER INC-2013117900

PATIENT
  Sex: Male
  Weight: 63.49 kg

DRUGS (10)
  1. LIPITOR [Suspect]
     Indication: BLOOD CHOLESTEROL ABNORMAL
     Dosage: UNK
     Dates: end: 2010
  2. IMODIUM [Concomitant]
     Indication: DIARRHOEA
     Dosage: UNK
  3. FOSINOPRIL [Concomitant]
     Indication: RHINORRHOEA
     Dosage: UNK
  4. LANOXIN [Concomitant]
     Dosage: UNK
  5. AMLODIPINE BESILATE [Concomitant]
     Indication: HYPERTENSION
     Dosage: UNK
  6. QUINAGLUTE DURA-TABS [Concomitant]
     Indication: CARDIAC DISORDER
     Dosage: UNK
  7. VITAMIN E [Concomitant]
     Dosage: UNK
  8. VITAMIN C [Concomitant]
     Dosage: UNK
  9. CALCIUM [Concomitant]
     Dosage: UNK
  10. ASPIRIN [Concomitant]
     Dosage: UNK

REACTIONS (6)
  - Gait disturbance [Recovering/Resolving]
  - Burning sensation [Recovering/Resolving]
  - Pruritus [Recovering/Resolving]
  - Hypersomnia [Recovering/Resolving]
  - Decreased appetite [Recovering/Resolving]
  - Rash [Recovering/Resolving]
